FAERS Safety Report 9052804 (Version 2)
Quarter: 2013Q1

REPORT INFORMATION
  Report Type: Spontaneous
  Country: IT (occurrence: IT)
  Receive Date: 20130207
  Receipt Date: 20130315
  Transmission Date: 20140127
  Serious: Yes (Disabling)
  Sender: FDA-Public Use
  Company Number: IT-GENZYME-POMP-1002774

PATIENT
  Sex: Female
  Weight: 35 kg

DRUGS (2)
  1. MYOZYME [Suspect]
     Indication: GLYCOGEN STORAGE DISEASE TYPE II
     Dosage: 40 MG/KG, Q2W
     Route: 042
     Dates: start: 20020602
  2. ZAVESCA [Suspect]
     Indication: OFF LABEL USE
     Dosage: 4 CAPS, Q14D
     Route: 048
     Dates: start: 20110402, end: 20121204

REACTIONS (2)
  - Asthenia [Not Recovered/Not Resolved]
  - Drug ineffective [Not Recovered/Not Resolved]
